FAERS Safety Report 8112783-8 (Version None)
Quarter: 2012Q1

REPORT INFORMATION
  Report Type: 
  Country: None (occurrence: None)
  Receive Date: 20120203
  Receipt Date: 20120124
  Transmission Date: 20120608
  Serious: Yes (Death, Other)
  Sender: FDA-Public Use
  Company Number: JP-BRISTOL-MYERS SQUIBB COMPANY-16371866

PATIENT
  Age: 7 Year
  Sex: Female

DRUGS (4)
  1. IFOSFAMIDE [Suspect]
  2. ADRIAMYCIN RDF [Suspect]
  3. METHOTREXATE [Suspect]
  4. CISPLATIN [Suspect]
     Route: 042

REACTIONS (1)
  - ACUTE MYELOID LEUKAEMIA [None]
